FAERS Safety Report 6449909-8 (Version None)
Quarter: 2009Q4

REPORT INFORMATION
  Report Type: 
  Country: None (occurrence: None)
  Receive Date: 20091123
  Receipt Date: 20091116
  Transmission Date: 20100525
  Serious: Yes (Hospitalization, Other)
  Sender: FDA-Public Use
  Company Number: US-BIOGENIDEC-2009BI027306

PATIENT
  Age: 48 Year
  Sex: Female
  Weight: 102 kg

DRUGS (1)
  1. TYSABRI [Suspect]
     Indication: MULTIPLE SCLEROSIS
     Route: 042
     Dates: start: 20080922, end: 20090701

REACTIONS (7)
  - ABASIA [None]
  - ANAEMIA [None]
  - HAEMORRHAGE [None]
  - HERNIA PAIN [None]
  - PRECANCEROUS CELLS PRESENT [None]
  - UTERINE CANCER [None]
  - UTERINE LEIOMYOMA [None]
